FAERS Safety Report 15299775 (Version 1)
Quarter: 2018Q4

REPORT INFORMATION
  Report Type: Spontaneous
  Country: FR (occurrence: FR)
  Receive Date: 20180821
  Receipt Date: 20180821
  Transmission Date: 20190204
  Serious: Yes (Other)
  Sender: FDA-Public Use
  Company Number: FR-TEVA-2018-FR-944561

PATIENT
  Age: 3 Year
  Sex: Female
  Weight: 22.5 kg

DRUGS (6)
  1. MIMPARA 30 MG, COMPRIM? PELLICUL? [Suspect]
     Active Substance: CINACALCET HYDROCHLORIDE
     Indication: HYPERPARATHYROIDISM
     Dosage: 30 MILLIGRAM DAILY;
     Route: 048
     Dates: start: 20160223
  2. RENVELA [Suspect]
     Active Substance: SEVELAMER CARBONATE
     Indication: CHRONIC KIDNEY DISEASE-MINERAL AND BONE DISORDER
     Dosage: 7200 MILLIGRAM DAILY;
     Route: 048
  3. CORTANCYL 1 MG, COMPRIM? [Suspect]
     Active Substance: PREDNISONE
     Indication: RENAL TRANSPLANT
     Dosage: 2 MILLIGRAM DAILY;
     Route: 048
  4. ENALAPRIL (MALEATE D^) [Suspect]
     Active Substance: ENALAPRIL MALEATE
     Indication: RENAL TRANSPLANT
     Dosage: 12.5 MILLIGRAM DAILY;
     Route: 048
  5. NEORAL [Suspect]
     Active Substance: CYCLOSPORINE
     Indication: RENAL TRANSPLANT
     Dosage: 20 MILLIGRAM DAILY;
     Route: 048
  6. UN-ALFA 0,10 MICROGRAMMES, SOLUTION BUVABLE EN GOUTTES [Suspect]
     Active Substance: ALFACALCIDOL
     Indication: OSTEODYSTROPHY
     Dosage: 5 GTT DAILY;
     Route: 048

REACTIONS (1)
  - Precocious puberty [Not Recovered/Not Resolved]

NARRATIVE: CASE EVENT DATE: 20180501
